FAERS Safety Report 6782315-5 (Version None)
Quarter: 2010Q2

REPORT INFORMATION
  Report Type: 
  Country: None (occurrence: None)
  Receive Date: 20100616
  Receipt Date: 20100504
  Transmission Date: 20101027
  Serious: Yes (Other)
  Sender: FDA-Public Use
  Company Number: US-1182112

PATIENT
  Sex: Male
  Weight: 67.586 kg

DRUGS (3)
  1. OMNIPRED [Suspect]
     Indication: EYE LASER SURGERY
     Dosage: 1 GTT QID OPHTHALMIC
     Route: 047
  2. DOSTINEX [Concomitant]
  3. CLARITIN [Concomitant]

REACTIONS (5)
  - BLADDER SPASM [None]
  - CATHETER SITE PAIN [None]
  - CATHETER SITE RELATED REACTION [None]
  - URETHRAL SPASM [None]
  - URINARY RETENTION [None]
